FAERS Safety Report 7265053-4 (Version None)
Quarter: 2011Q1

REPORT INFORMATION
  Report Type: 
  Country: None (occurrence: None)
  Receive Date: 20110131
  Receipt Date: 20110124
  Transmission Date: 20110831
  Serious: Yes (Hospitalization, Other)
  Sender: FDA-Public Use
  Company Number: US-TEVA-253052USA

PATIENT
  Sex: Female

DRUGS (3)
  1. CITALOPRAM HYDROBROMIDE [Concomitant]
     Route: 048
  2. AMLODIPINE [Concomitant]
     Route: 048
  3. ADENOSINE [Suspect]
     Indication: CARDIAC ARREST

REACTIONS (9)
  - HEART RATE INCREASED [None]
  - CHEST PAIN [None]
  - ANAPHYLACTIC REACTION [None]
  - DYSPNOEA [None]
  - RESPIRATORY DISTRESS [None]
  - WHEEZING [None]
  - BREATH SOUNDS ABNORMAL [None]
  - RESPIRATORY GAS EXCHANGE DISORDER [None]
  - FLUSHING [None]
